FAERS Safety Report 13469478 (Version 2)
Quarter: 2017Q2

REPORT INFORMATION
  Report Type: Spontaneous
  Country: EE (occurrence: EE)
  Receive Date: 20170421
  Receipt Date: 20170619
  Transmission Date: 20170830
  Serious: Yes (Death, Life-Threatening, Other)
  Sender: FDA-Public Use
  Company Number: EE-009507513-1704EST007704

PATIENT
  Age: 31 Year
  Sex: Female
  Weight: 80 kg

DRUGS (5)
  1. TAVEGYL [Concomitant]
     Active Substance: CLEMASTINE FUMARATE
     Indication: ANTIALLERGIC THERAPY
     Dosage: PRIOR INFUSION
     Dates: start: 20170329, end: 20170329
  2. TAVEGYL [Concomitant]
     Active Substance: CLEMASTINE FUMARATE
     Dosage: PRIOR INFUSION
     Dates: start: 20170330, end: 20170330
  3. LASIX [Concomitant]
     Active Substance: FUROSEMIDE
     Indication: DIURETIC THERAPY
     Dosage: 60 MG, REGULARLY
  4. NOXAFIL [Suspect]
     Active Substance: POSACONAZOLE
     Indication: ANTIFUNGAL PROPHYLAXIS
     Dosage: 300 MG, QD
     Route: 048
     Dates: start: 20170317, end: 20170330
  5. CIPRINOL [Interacting]
     Active Substance: CIPROFLOXACIN
     Indication: YERSINIA INFECTION
     Dosage: 500 MG, BID
     Route: 048
     Dates: start: 20170324, end: 20170330

REACTIONS (3)
  - Drug interaction [Fatal]
  - Bradycardia [Fatal]
  - Electrocardiogram QT prolonged [Fatal]

NARRATIVE: CASE EVENT DATE: 20170330
